FAERS Safety Report 24293928 (Version 1)
Quarter: 2024Q3

REPORT INFORMATION
  Report Type: Spontaneous
  Country: US (occurrence: None)
  Receive Date: 20240906
  Receipt Date: 20240906
  Transmission Date: 20241017
  Serious: No
  Sender: DOMPE FARMACEUTICI
  Company Number: US-FARMAPROD-202308-202403-0903

PATIENT
  Sex: Female

DRUGS (14)
  1. OXERVATE [Suspect]
     Active Substance: CENEGERMIN-BKBJ
     Indication: Neurotrophic keratopathy
     Route: 047
     Dates: start: 20240219
  2. OXERVATE [Suspect]
     Active Substance: CENEGERMIN-BKBJ
  3. OXERVATE [Suspect]
     Active Substance: CENEGERMIN-BKBJ
  4. OXERVATE [Suspect]
     Active Substance: CENEGERMIN-BKBJ
  5. CYANOCOBALAMIN [Concomitant]
     Active Substance: CYANOCOBALAMIN
  6. TELMISARTAN [Concomitant]
     Active Substance: TELMISARTAN
  7. NITROFURANTOIN [Concomitant]
     Active Substance: NITROFURANTOIN
  8. VITAMIN C [Concomitant]
     Active Substance: ASCORBIC ACID
  9. ARMOUR THYROID [Concomitant]
     Active Substance: THYROID, PORCINE
  10. FLAXSEED [Concomitant]
     Active Substance: FLAX SEED
  11. ATORVASTATIN CALCIUM [Concomitant]
     Active Substance: ATORVASTATIN CALCIUM
  12. ASPIRIN [Concomitant]
     Active Substance: ASPIRIN
  13. OZEMPIC [Concomitant]
     Active Substance: SEMAGLUTIDE
     Dosage: .25 OR 0.5 PEN INJECTOR
  14. CARVEDILOL [Concomitant]
     Active Substance: CARVEDILOL

REACTIONS (4)
  - Inappropriate schedule of product administration [Unknown]
  - Off label use [Unknown]
  - Underdose [Unknown]
  - Wrong technique in product usage process [Unknown]
